FAERS Safety Report 21368325 (Version 1)
Quarter: 2022Q3

REPORT INFORMATION
  Report Type: Spontaneous
  Country: JP (occurrence: JP)
  Receive Date: 20220923
  Receipt Date: 20220923
  Transmission Date: 20221027
  Serious: Yes (Other)
  Sender: FDA-Public Use
  Company Number: JP-SUN PHARMACEUTICAL INDUSTRIES LTD-2022R1-354902

PATIENT
  Age: 22 Year
  Sex: Male
  Weight: 84.1 kg

DRUGS (2)
  1. TEGRETOL [Suspect]
     Active Substance: CARBAMAZEPINE
     Indication: Seizure
     Dosage: UNK
     Route: 065
  2. VALPROIC ACID [Suspect]
     Active Substance: VALPROIC ACID
     Indication: Seizure
     Dosage: UNK
     Route: 065

REACTIONS (7)
  - Intellectual disability [Unknown]
  - Autism spectrum disorder [Unknown]
  - Hereditary ataxia [Unknown]
  - Dyskinesia [Unknown]
  - Hyperuricaemia [Unknown]
  - Hepatic function abnormal [Unknown]
  - Essential hypertension [Unknown]
